FAERS Safety Report 17880241 (Version 1)
Quarter: 2020Q2

REPORT INFORMATION
  Report Type: Spontaneous
  Country: US (occurrence: US)
  Receive Date: 20200609
  Receipt Date: 20200609
  Transmission Date: 20200714
  Serious: Yes (Hospitalization)
  Sender: FDA-Public Use
  Company Number: None

PATIENT
  Age: 72 Year
  Sex: Male
  Weight: 58 kg

DRUGS (1)
  1. RIVAROXABAN (RIVAROXABAN 20MG TAB) [Suspect]
     Active Substance: RIVAROXABAN
     Route: 048

REACTIONS (4)
  - Gastric haemorrhage [None]
  - Gastrointestinal haemorrhage [None]
  - Haemoglobin decreased [None]
  - Arteriovenous malformation [None]

NARRATIVE: CASE EVENT DATE: 20200312
